FAERS Safety Report 12054210 (Version 3)
Quarter: 2016Q1

REPORT INFORMATION
  Report Type: Spontaneous
  Country: FR (occurrence: FR)
  Receive Date: 20160209
  Receipt Date: 20160212
  Transmission Date: 20160526
  Serious: Yes (Other)
  Sender: FDA-Public Use
  Company Number: FR-009507513-1602FRA001476

PATIENT
  Age: 34 Year
  Sex: Female

DRUGS (14)
  1. IMUREL [Suspect]
     Active Substance: AZATHIOPRINE SODIUM
     Indication: CUTANEOUS LUPUS ERYTHEMATOSUS
     Dosage: 125 MG, QD
  2. ASPEGIC [Suspect]
     Active Substance: ASPIRIN DL-LYSINE
     Dosage: 100 MG, QD
  3. LOSARTAN POTASSIUM. [Suspect]
     Active Substance: LOSARTAN POTASSIUM
     Indication: HYPERTENSION
     Dosage: 100 MG, QD
     Route: 048
     Dates: end: 20141217
  4. CELLCEPT [Suspect]
     Active Substance: MYCOPHENOLATE MOFETIL\MYCOPHENOLATE MOFETIL HYDROCHLORIDE
     Indication: CUTANEOUS LUPUS ERYTHEMATOSUS
     Dosage: 2 G DAILY
     Dates: end: 20151217
  5. ROVAMYCINE [Concomitant]
     Active Substance: SPIRAMYCIN
     Indication: LUNG INFECTION
     Dosage: UNK
     Dates: start: 20150411, end: 20150505
  6. LOXEN [Suspect]
     Active Substance: NICARDIPINE HYDROCHLORIDE
     Indication: HYPERTENSION
     Dosage: 100 MG, QD
  7. CORTANCYL [Suspect]
     Active Substance: PREDNISONE
     Indication: CUTANEOUS LUPUS ERYTHEMATOSUS
     Dosage: 30 MG, QD
  8. TAMIFLU [Concomitant]
     Active Substance: OSELTAMIVIR PHOSPHATE
     Dosage: UNK
     Dates: start: 20150411, end: 20150505
  9. CLAMOXYL [Concomitant]
     Active Substance: AMOXICILLIN\CLAVULANIC ACID
     Indication: LUNG INFECTION
     Dosage: UNK
     Dates: start: 20150411, end: 20150505
  10. LOVENOX [Suspect]
     Active Substance: ENOXAPARIN SODIUM
     Indication: HYPERTENSION
     Dosage: 1.2 ML, QD
  11. LASILIX [Suspect]
     Active Substance: FUROSEMIDE
     Dosage: UNK
     Dates: start: 20141217
  12. TRANDATE [Suspect]
     Active Substance: LABETALOL HYDROCHLORIDE
     Indication: HYPERTENSION
     Dosage: 400 MG, QD
     Dates: start: 20150115
  13. PLAQUENIL [Suspect]
     Active Substance: HYDROXYCHLOROQUINE SULFATE
     Indication: CUTANEOUS LUPUS ERYTHEMATOSUS
     Dosage: 400 MG, QD
  14. BACTRIM [Concomitant]
     Active Substance: SULFAMETHOXAZOLE\TRIMETHOPRIM
     Indication: PNEUMOCYSTIS JIROVECII PNEUMONIA
     Dosage: UNK
     Dates: start: 20150411, end: 20150505

REACTIONS (3)
  - Pneumocystis jirovecii pneumonia [Unknown]
  - Maternal exposure during pregnancy [Recovered/Resolved]
  - Abortion induced [Unknown]

NARRATIVE: CASE EVENT DATE: 20150411
